FAERS Safety Report 20291281 (Version 1)
Quarter: 2022Q1

REPORT INFORMATION
  Report Type: Spontaneous
  Country: US (occurrence: None)
  Receive Date: 20220103
  Receipt Date: 20220103
  Transmission Date: 20220424
  Serious: No
  Sender: FDA-Public Use
  Company Number: None

PATIENT
  Age: 29 Year
  Sex: Female
  Weight: 97 kg

DRUGS (3)
  1. CEFOTETAN [Suspect]
     Active Substance: CEFOTETAN DISODIUM
     Indication: Pelvic infection
     Dosage: FREQUENCY : TWICE A DAY;?
     Route: 042
  2. DEXTROSE [Suspect]
     Active Substance: DEXTROSE
     Dosage: FREQUENCY : TWICE A DAY;?
     Route: 042
     Dates: start: 20220103, end: 20220103
  3. Doxycycline 100 mg PO BID [Concomitant]
     Dates: start: 20220103

REACTIONS (2)
  - Infusion related reaction [None]
  - Rash [None]

NARRATIVE: CASE EVENT DATE: 20220103
